FAERS Safety Report 8470231-2 (Version None)
Quarter: 2012Q2

REPORT INFORMATION
  Report Type: 
  Country: None (occurrence: None)
  Receive Date: 20120627
  Receipt Date: 20120526
  Transmission Date: 20120825
  Serious: Yes (Hospitalization)
  Sender: FDA-Public Use
  Company Number: BD-JNJFOC-20120610784

PATIENT

DRUGS (1)
  1. MEBENDAZOLE [Suspect]
     Indication: HELMINTHIC INFECTION
     Route: 065

REACTIONS (3)
  - HEADACHE [None]
  - VOMITING [None]
  - ABDOMINAL PAIN [None]
